FAERS Safety Report 21823048 (Version 1)
Quarter: 2023Q1

REPORT INFORMATION
  Report Type: Spontaneous
  Country: US (occurrence: US)
  Receive Date: 20230105
  Receipt Date: 20230105
  Transmission Date: 20230418
  Serious: Yes (Other)
  Sender: FDA-Public Use
  Company Number: US-PFIZER INC-PV202300001549

PATIENT

DRUGS (2)
  1. ENCORAFENIB [Suspect]
     Active Substance: ENCORAFENIB
     Dosage: UNK
     Dates: start: 20221215
  2. BINIMETINIB [Suspect]
     Active Substance: BINIMETINIB
     Dosage: UNK
     Dates: start: 20221215

REACTIONS (3)
  - Thrombocytopenia [Recovered/Resolved]
  - Asthenia [Unknown]
  - Nausea [Unknown]

NARRATIVE: CASE EVENT DATE: 20221222
